FAERS Safety Report 20736566 (Version 1)
Quarter: 2022Q2

REPORT INFORMATION
  Report Type: Spontaneous
  Country: US (occurrence: US)
  Receive Date: 20220421
  Receipt Date: 20220421
  Transmission Date: 20220720
  Serious: No
  Sender: FDA-Public Use
  Company Number: US-PFIZER INC-202200229923

PATIENT
  Age: 78 Year
  Sex: Female
  Weight: 77.098 kg

DRUGS (1)
  1. IBRANCE [Suspect]
     Active Substance: PALBOCICLIB
     Indication: Breast cancer female
     Dosage: 125 MG, CYCLIC (TAKE IT EVERY MORNING FOR 21 DAYS THEN I GO FOR 7 DAYS OFF)

REACTIONS (1)
  - Neoplasm progression [Unknown]
